FAERS Safety Report 12853346 (Version 1)
Quarter: 2016Q4

REPORT INFORMATION
  Report Type: Spontaneous
  Country: US (occurrence: US)
  Receive Date: 20161017
  Receipt Date: 20161017
  Transmission Date: 20170207
  Serious: No
  Sender: FDA-Public Use
  Company Number: US-PAR PHARMACEUTICAL, INC-2015SCPR015039

PATIENT

DRUGS (6)
  1. CHOLESTYRAMINE. [Suspect]
     Active Substance: CHOLESTYRAMINE
     Indication: DIARRHOEA
     Dosage: 1 PACKET, OD
     Route: 048
     Dates: start: 20151218, end: 20151218
  2. DIAZEPAM. [Suspect]
     Active Substance: DIAZEPAM
     Indication: MIGRAINE
  3. NORCO [Concomitant]
     Active Substance: ACETAMINOPHEN\HYDROCODONE BITARTRATE
     Indication: ARTHROPATHY
     Dosage: 1 DF, PRN
     Route: 048
  4. VALTREX [Concomitant]
     Active Substance: VALACYCLOVIR HYDROCHLORIDE
     Indication: GENITAL HERPES
     Dosage: UNK, PRN
     Route: 048
  5. ESTROGEN [Concomitant]
     Active Substance: ESTRONE\SUS SCROFA OVARY
     Indication: HORMONE REPLACEMENT THERAPY
     Dosage: 1 DF, OD
     Route: 048
  6. DIAZEPAM. [Suspect]
     Active Substance: DIAZEPAM
     Indication: DYSTONIA
     Dosage: 1 DF, BID
     Route: 048

REACTIONS (5)
  - Malaise [Recovered/Resolved]
  - Nausea [Recovered/Resolved]
  - Product use issue [Unknown]
  - Migraine [Recovered/Resolved]
  - Aura [Recovered/Resolved]

NARRATIVE: CASE EVENT DATE: 20151218
